FAERS Safety Report 5022070-2 (Version None)
Quarter: 2006Q2

REPORT INFORMATION
  Report Type: 
  Country: None (occurrence: None)
  Receive Date: 20060609
  Receipt Date: 20060530
  Transmission Date: 20061013
  Serious: Yes (Other)
  Sender: FDA-Public Use
  Company Number: 2006AC01025

PATIENT
  Age: 17 Year
  Sex: Male

DRUGS (14)
  1. PROPOFOL [Suspect]
     Indication: ANAESTHESIA
     Dosage: CARDIAC ABLATION OF AN ABERRANT PATHWAY
     Route: 042
  2. PROPOFOL [Suspect]
     Dosage: POST ABLATION TRANSESOPHAGEAL ECHOCARDIOGRAM, GIVEN OVER 20 MINUTES
  3. ATENOLOL [Concomitant]
     Dosage: HELD PRIOR TO PROCEDURE
  4. MESALAMINE [Concomitant]
  5. POLYETHYLENE GLYCOL [Concomitant]
  6. MERCAPTOPURINE [Concomitant]
  7. GABAPENTIN [Concomitant]
  8. TRAMADOL HCL [Concomitant]
     Dosage: 50-100 MG EVERY SIX HOURS AS NEEDED
  9. MIDAZOLAM HCL [Concomitant]
     Indication: ANAESTHESIA
     Dosage: CARDIAC ABLATION OF AN ABERRANT PATHWAY
  10. MIDAZOLAM HCL [Concomitant]
     Dosage: POST ABLATION TRANSESOPHAGEAL ECHOCARDIOGRAM
  11. NIMBEX [Concomitant]
     Indication: ANAESTHESIA
     Dosage: CARDIAC ABLATION OF AN ABERRANT PATHWAY
     Route: 042
  12. SEVOFLURANE [Concomitant]
     Indication: ANAESTHESIA
     Dosage: CARDIAC ABLATION OF AN ABERRANT PATHWAY
     Route: 055
  13. NITROUS OXIDE W/ OXYGEN [Concomitant]
     Indication: ANAESTHESIA
     Dosage: CARDIAC ABLATION OF AN ABERRANT PATHWAY
     Route: 055
  14. FENTANYL [Concomitant]
     Indication: ANAESTHESIA
     Dosage: POST ABLATION TRANSESOPHAGEAL ECHOCARDIOGRAM

REACTIONS (1)
  - PRIAPISM [None]
